FAERS Safety Report 21973449 (Version 3)
Quarter: 2024Q3

REPORT INFORMATION
  Report Type: Spontaneous
  Country: US (occurrence: US)
  Receive Date: 20230209
  Receipt Date: 20240801
  Transmission Date: 20241016
  Serious: No
  Sender: SANOFI AVENTIS
  Company Number: US-SA-SAC20230208000300

PATIENT
  Age: 48 Year
  Sex: Female

DRUGS (7)
  1. DUPIXENT [Suspect]
     Active Substance: DUPILUMAB
     Indication: Dermatitis atopic
     Dosage: 300 MG, QOW
     Route: 058
     Dates: start: 20201210
  2. NORVASC [Concomitant]
     Active Substance: AMLODIPINE BESYLATE
  3. NORVASC [Concomitant]
     Active Substance: AMLODIPINE BESYLATE
  4. ZOLOFT [Concomitant]
     Active Substance: SERTRALINE HYDROCHLORIDE
  5. ZOLOFT [Concomitant]
     Active Substance: SERTRALINE HYDROCHLORIDE
  6. CHLOROTHIAZIDE [Concomitant]
     Active Substance: CHLOROTHIAZIDE
  7. CHLOROTHIAZIDE [Concomitant]
     Active Substance: CHLOROTHIAZIDE

REACTIONS (5)
  - Dermatitis atopic [Not Recovered/Not Resolved]
  - Sleep disorder due to a general medical condition [Not Recovered/Not Resolved]
  - Discomfort [Not Recovered/Not Resolved]
  - Product dose omission in error [Unknown]
  - Drug ineffective [Unknown]

NARRATIVE: CASE EVENT DATE: 20230101
